FAERS Safety Report 25848783 (Version 2)
Quarter: 2025Q4

REPORT INFORMATION
  Report Type: Spontaneous
  Country: EU (occurrence: EU)
  Receive Date: 20250925
  Receipt Date: 20251020
  Transmission Date: 20260117
  Serious: No
  Sender: TAIHO ONCOLOGY INC
  Company Number: EU-SERVIER-S25013652

PATIENT
  Age: 55 Year
  Sex: Female

DRUGS (2)
  1. LONSURF [Suspect]
     Active Substance: TIPIRACIL HYDROCHLORIDE\TRIFLURIDINE
     Indication: Adenocarcinoma of colon
     Dosage: 35 MG/M2, BID ( DAYS 1-5 AND 8-12, EVERY 28 DAYS)
     Route: 048
     Dates: start: 202311, end: 202502
  2. BEVACIZUMAB [Suspect]
     Active Substance: BEVACIZUMAB
     Indication: Adenocarcinoma of colon
     Dosage: 5 MG/KG, BID
     Route: 065
     Dates: start: 202311, end: 202502

REACTIONS (1)
  - Neutropenia [Recovered/Resolved]

NARRATIVE: CASE EVENT DATE: 20240501
